FAERS Safety Report 5078937-2 (Version None)
Quarter: 2006Q3

REPORT INFORMATION
  Report Type: 
  Country: None (occurrence: None)
  Receive Date: 20060814
  Receipt Date: 20060801
  Transmission Date: 20061208
  Serious: Yes (Hospitalization)
  Sender: FDA-Public Use
  Company Number: US-JNJFOC-20060800865

PATIENT
  Sex: Male

DRUGS (18)
  1. DOXIL [Suspect]
     Indication: NON-HODGKIN'S LYMPHOMA
     Route: 042
  2. VINCRISTINE [Suspect]
     Indication: NON-HODGKIN'S LYMPHOMA
  3. RITUXAN [Concomitant]
     Indication: NON-HODGKIN'S LYMPHOMA
  4. DECADRON [Concomitant]
     Indication: NON-HODGKIN'S LYMPHOMA
  5. BACTRIM DS [Concomitant]
  6. CANCIDAS [Concomitant]
  7. THEOPHYLLINE [Concomitant]
  8. SOLU-MEDROL [Concomitant]
  9. SINGULAIR [Concomitant]
  10. ACYCLOVIR [Concomitant]
  11. ALBUTEROL [Concomitant]
     Route: 055
  12. ZOSYN [Concomitant]
     Route: 042
  13. FLUCONAZOLE [Concomitant]
  14. FLOMAX [Concomitant]
  15. PROTONIX [Concomitant]
  16. LEVAQUIN [Concomitant]
  17. LACRILUBE [Concomitant]
  18. ATROVENT [Concomitant]
     Route: 055

REACTIONS (4)
  - ILEUS [None]
  - LUNG DISORDER [None]
  - MUCOSAL INFLAMMATION [None]
  - NEUTROPENIA [None]
